FAERS Safety Report 8449700-7 (Version None)
Quarter: 2012Q2

REPORT INFORMATION
  Report Type: 
  Country: None (occurrence: None)
  Receive Date: 20120601
  Receipt Date: 20120516
  Transmission Date: 20120825
  Serious: Yes (Death)
  Sender: FDA-Public Use
  Company Number: 2012032323

PATIENT
  Sex: Male

DRUGS (1)
  1. CARIMUNE NF [Suspect]
     Indication: SELECTIVE IGG SUBCLASS DEFICIENCY
     Dosage: (30 G 1X/4 WEEKS),
     Dates: start: 20090820

REACTIONS (1)
  - DEATH [None]
